FAERS Safety Report 23042786 (Version 2)
Quarter: 2023Q4

REPORT INFORMATION
  Report Type: Report from Study
  Country: US (occurrence: US)
  Receive Date: 20231009
  Receipt Date: 20231226
  Transmission Date: 20240109
  Serious: Yes (Other)
  Sender: FDA-Public Use
  Company Number: US-ABBVIE-5349024

PATIENT
  Sex: Male

DRUGS (1)
  1. RINVOQ [Suspect]
     Active Substance: UPADACITINIB
     Indication: Dermatologic examination
     Route: 048
     Dates: start: 20221028

REACTIONS (6)
  - Blindness [Unknown]
  - Condition aggravated [Unknown]
  - Blood pressure increased [Unknown]
  - Delusion of parasitosis [Unknown]
  - Cough [Not Recovered/Not Resolved]
  - Anxiety [Unknown]

NARRATIVE: CASE EVENT DATE: 20230101
